FAERS Safety Report 14290144 (Version 2)
Quarter: 2018Q2

REPORT INFORMATION
  Report Type: Spontaneous
  Country: US (occurrence: US)
  Receive Date: 20171215
  Receipt Date: 20180427
  Transmission Date: 20180711
  Serious: No
  Sender: FDA-Public Use
  Company Number: US-PFIZER INC-2017536149

PATIENT
  Age: 57 Year
  Sex: Female

DRUGS (13)
  1. LOVASTATIN. [Concomitant]
     Active Substance: LOVASTATIN
     Dosage: 10 MG, 1X/DAY (WITH A MEAL)
     Route: 048
     Dates: start: 20170526
  2. CELEXA [Concomitant]
     Active Substance: CITALOPRAM HYDROBROMIDE
     Dosage: 10 MG, 1X/DAY
     Route: 048
     Dates: start: 20170718
  3. PROVENTIL HFA [Concomitant]
     Active Substance: ALBUTEROL SULFATE
     Dosage: 216 UG, AS NEEDED (108 (90 BASE) MCG/ACT 2 PUFFS EVERY 4 HRS)
     Route: 055
     Dates: start: 20150527
  4. NASONEX [Concomitant]
     Active Substance: MOMETASONE FUROATE
     Dosage: 2 SPRAY IN EACH NOSTRIL, 1X/DAY
     Route: 045
     Dates: start: 20151202
  5. HYDROCODONE/ACETAMINOPHEN [Concomitant]
     Active Substance: ACETAMINOPHEN\HYDROCODONE
     Dosage: UNK, AS NEEDED (HYDROCODONE10 MG/ACETAMINOPHEN 325 MG)(1 TABLET AS NEEDED ORALLY 4 HRS)
     Route: 048
  6. DULERA [Concomitant]
     Active Substance: FORMOTEROL FUMARATE DIHYDRATE\MOMETASONE FUROATE
     Dosage: [FORMOTEROL FUMARATE 5MCG/ACT]/[MOMETASONE FUROATE 100MCG/ACT] (1-2 PUFFS)], 2X/DAY
     Route: 055
     Dates: start: 20120329
  7. ESTRADIOL. [Concomitant]
     Active Substance: ESTRADIOL
     Dosage: 1.5 TABLET, DAILY
     Route: 048
     Dates: start: 20140428
  8. EFFEXOR XR [Suspect]
     Active Substance: VENLAFAXINE HYDROCHLORIDE
     Dosage: UNK
     Route: 048
  9. MELOXICAM. [Concomitant]
     Active Substance: MELOXICAM
     Dosage: 15 MG, 1X/DAY
     Route: 048
     Dates: start: 20150312
  10. LYRICA [Concomitant]
     Active Substance: PREGABALIN
     Dosage: 75 MG, 3X/DAY (AS DIRECTED)
     Route: 048
     Dates: start: 20161012
  11. SUMATRIPTAN. [Concomitant]
     Active Substance: SUMATRIPTAN
     Dosage: 20 MG, UNK(SOLUTION)
     Route: 045
  12. PROVENTIL HFA [Concomitant]
     Active Substance: ALBUTEROL SULFATE
     Dosage: 216 UG, AS NEEDED (108 (90 BASE) MCG/ACT 2 PUFFS EVERY 6 HRS)
     Route: 055
     Dates: start: 20160613
  13. ZYRTEC [Concomitant]
     Active Substance: CETIRIZINE HYDROCHLORIDE
     Dosage: 10 MG, AS NEEDED (ONCE A DAY)
     Route: 048

REACTIONS (3)
  - Drug hypersensitivity [Unknown]
  - Fatigue [Unknown]
  - Dizziness [Unknown]
